FAERS Safety Report 7340895-5 (Version None)
Quarter: 2011Q1

REPORT INFORMATION
  Report Type: 
  Country: None (occurrence: None)
  Receive Date: 20110309
  Receipt Date: 20100608
  Transmission Date: 20110831
  Serious: No
  Sender: FDA-Public Use
  Company Number: US-ABBOTT-10P-163-0639323-00

PATIENT
  Sex: Female

DRUGS (6)
  1. HYDROXYPROGESTERONE CAPROATE [Concomitant]
     Indication: PROPHYLAXIS
     Route: 030
  2. PRENATAL VITAMINS [Concomitant]
     Indication: PRODUCT USED FOR UNKNOWN INDICATION
  3. HYDROXYPROGESTERONE CAPROATE [Concomitant]
     Indication: PREMATURE LABOUR
  4. HYDROXYPROGESTERONE CAPROATE [Concomitant]
     Indication: CERVIX CERCLAGE PROCEDURE
  5. LUPRON DEPOT [Suspect]
     Indication: ACCIDENTAL EXPOSURE
     Route: 030
     Dates: start: 20100412, end: 20100412
  6. HYDROXYPROGESTERONE CAPROATE [Concomitant]
     Indication: HIGH RISK PREGNANCY

REACTIONS (2)
  - INJECTION SITE PAIN [None]
  - ACCIDENTAL EXPOSURE [None]
